FAERS Safety Report 7382997-3 (Version None)
Quarter: 2011Q1

REPORT INFORMATION
  Report Type: 
  Country: None (occurrence: None)
  Receive Date: 20110330
  Receipt Date: 20101013
  Transmission Date: 20110831
  Serious: Yes (Hospitalization, Other)
  Sender: FDA-Public Use
  Company Number: US-BAYER-201011606NA

PATIENT
  Sex: Female
  Weight: 77.098 kg

DRUGS (3)
  1. YAZ [Suspect]
     Indication: PREMENSTRUAL SYNDROME
  2. YAZ [Suspect]
     Indication: CONTRACEPTION
     Dosage: UNK
     Dates: start: 20070401, end: 20090801
  3. YAZ [Suspect]
     Indication: ACNE

REACTIONS (6)
  - CHOLECYSTITIS [None]
  - ABDOMINAL PAIN UPPER [None]
  - PANCREATITIS [None]
  - CHOLELITHIASIS [None]
  - GALLBLADDER INJURY [None]
  - PAIN [None]
